FAERS Safety Report 4802091-2 (Version None)
Quarter: 2005Q4

REPORT INFORMATION
  Report Type: 
  Country: None (occurrence: None)
  Receive Date: 20051012
  Receipt Date: 20050928
  Transmission Date: 20060501
  Serious: Yes (Other)
  Sender: FDA-Public Use
  Company Number: 2005EN000357

PATIENT
  Age: 6 Year
  Sex: Female

DRUGS (4)
  1. ONCASPAR [Suspect]
     Indication: LEUKAEMIA
     Dosage: 2200 IU
     Dates: start: 20050714
  2. VINCRISTINE [Concomitant]
  3. METHOTREXATE [Concomitant]
  4. DECADRON [Concomitant]

REACTIONS (1)
  - CEREBRAL INFARCTION [None]
